FAERS Safety Report 5022995-8 (Version None)
Quarter: 2006Q2

REPORT INFORMATION
  Report Type: 
  Country: None (occurrence: None)
  Receive Date: 20060426
  Receipt Date: 20060204
  Transmission Date: 20061013
  Serious: Yes (Other)
  Sender: FDA-Public Use
  Company Number: 2006017999

PATIENT
  Age: 50 Year
  Sex: Male

DRUGS (9)
  1. LYRICA [Suspect]
     Indication: ILL-DEFINED DISORDER
     Dosage: 225 MG (75 MG, 3 IN 1 D), ORAL
     Route: 048
     Dates: start: 20060120
  2. CORTICOSTEROID NOS (CORTICOSTEROID NOS) [Suspect]
     Indication: FALL
     Dates: start: 20060120
  3. POTASSIUM CHLORIDE [Concomitant]
  4. MAXZIDE [Concomitant]
  5. ACCUPRIL [Concomitant]
  6. FLEXERIL [Concomitant]
  7. LEXAPRO [Concomitant]
  8. HYDROCODONE BITARTRATE [Concomitant]
  9. BACLOFEN [Concomitant]

REACTIONS (12)
  - ACCIDENTAL OVERDOSE [None]
  - DIFFICULTY IN WALKING [None]
  - DYSPNOEA [None]
  - FEAR [None]
  - FEELING ABNORMAL [None]
  - HYPOTONIA [None]
  - MUSCLE SPASTICITY [None]
  - SOMNOLENCE [None]
  - URINARY INCONTINENCE [None]
  - URINARY RETENTION [None]
  - VISION BLURRED [None]
  - WEIGHT INCREASED [None]
